FAERS Safety Report 10192384 (Version 2)
Quarter: 2014Q2

REPORT INFORMATION
  Report Type: Spontaneous
  Country: CA (occurrence: CA)
  Receive Date: 20140523
  Receipt Date: 20140616
  Transmission Date: 20141212
  Serious: Yes (Life-Threatening, Other)
  Sender: FDA-Public Use
  Company Number: CA-ACTAVIS-2014-11015

PATIENT
  Age: 37 Year
  Sex: Female
  Weight: 150 kg

DRUGS (7)
  1. FENTANYL (UNKNOWN) [Suspect]
     Indication: CAESAREAN SECTION
     Dosage: 0.01 MG, UNKNOWN PERIOPERATIVE
     Route: 037
  2. MORPHINE (UNKNOWN) [Suspect]
     Indication: CAESAREAN SECTION
     Dosage: 4 MG, TOTAL (2 MG AT 12H AND 15 H IN WARD)
     Route: 058
  3. MORPHINE (UNKNOWN) [Suspect]
     Dosage: 1 MG, UNKNOWN POSTOPERATIVE
     Route: 042
  4. MORPHINE (UNKNOWN) [Suspect]
     Dosage: 0.1 MG, UNKNOWN PERIOPERATIVE
     Route: 037
  5. BUPIVACAINE [Concomitant]
     Indication: CAESAREAN SECTION
     Dosage: 0.75%
     Route: 037
  6. KETOROLAC [Concomitant]
     Indication: PROCEDURAL PAIN
     Dosage: 30 MG, UNKNOWN
     Route: 042
  7. ACETAMINOPHEN [Concomitant]
     Indication: PROCEDURAL PAIN
     Dosage: 1300 MG, UNKNOWN
     Route: 051

REACTIONS (3)
  - Respiratory depression [Recovered/Resolved]
  - Blood pressure increased [Unknown]
  - Maternal exposure during delivery [Recovered/Resolved]
